FAERS Safety Report 8297690-2 (Version None)
Quarter: 2012Q2

REPORT INFORMATION
  Report Type: 
  Country: None (occurrence: None)
  Receive Date: 20120419
  Receipt Date: 20120409
  Transmission Date: 20120825
  Serious: Yes (Hospitalization)
  Sender: FDA-Public Use
  Company Number: US-JNJFOC-20120403985

PATIENT
  Sex: Female
  Weight: 122.47 kg

DRUGS (14)
  1. TOPAMAX [Suspect]
     Indication: CONVULSION
     Route: 048
     Dates: end: 20100901
  2. TOPAMAX [Suspect]
     Dosage: 1 IN EACH EVENING
     Route: 048
     Dates: start: 20070101
  3. TOPIRAMATE [Suspect]
     Dosage: 50 MG 2 IN AM AND 2 IN PM
     Route: 048
     Dates: start: 20120101
  4. TOPAMAX [Suspect]
     Dosage: 1 IN THE AM AND PM
     Route: 048
  5. TOPAMAX [Suspect]
     Indication: HEADACHE
     Dosage: 1 IN THE AM AND PM
     Route: 048
  6. TOPAMAX [Suspect]
     Route: 048
     Dates: end: 20100901
  7. TOPIRAMATE [Suspect]
     Dosage: 1 IN AM AND 1 IN PM
     Route: 048
     Dates: start: 20120201, end: 20120101
  8. TOPAMAX [Suspect]
     Dosage: 1 IN THE AM AND PM
     Route: 048
  9. TOPAMAX [Suspect]
     Dosage: 1 IN EACH EVENING
     Route: 048
     Dates: start: 20070101
  10. FISH OIL [Concomitant]
     Route: 048
     Dates: start: 19920101
  11. MULTI-VITAMINS [Concomitant]
     Route: 048
  12. TOPIRAMATE [Suspect]
     Indication: HEADACHE
     Dosage: 1 IN AM AND 1 IN PM
     Route: 048
     Dates: start: 20120201, end: 20120101
  13. TOPAMAX [Suspect]
     Dosage: 1 IN THE AM AND PM
     Route: 048
  14. TOPIRAMATE [Suspect]
     Indication: CONVULSION
     Dosage: 50 MG 2 IN AM AND 2 IN PM
     Route: 048
     Dates: start: 20120101

REACTIONS (5)
  - COELIAC DISEASE [None]
  - HAEMOLYTIC ANAEMIA [None]
  - HEADACHE [None]
  - PANCYTOPENIA [None]
  - VISUAL ACUITY REDUCED [None]
